FAERS Safety Report 6618971-1 (Version None)
Quarter: 2010Q1

REPORT INFORMATION
  Report Type: 
  Country: None (occurrence: None)
  Receive Date: 20100308
  Receipt Date: 20100225
  Transmission Date: 20100710
  Serious: Yes (Hospitalization, Other)
  Sender: FDA-Public Use
  Company Number: PHHY2010JP11558

PATIENT
  Age: 84 Year
  Sex: Female

DRUGS (1)
  1. LOCHOL [Suspect]
     Dosage: UNK
     Route: 048

REACTIONS (5)
  - BLOOD CREATINE PHOSPHOKINASE INCREASED [None]
  - GAIT DISTURBANCE [None]
  - INFLAMMATION [None]
  - PNEUMONIA [None]
  - PYREXIA [None]
